FAERS Safety Report 12662829 (Version 1)
Quarter: 2016Q3

REPORT INFORMATION
  Report Type: Spontaneous
  Country: CN (occurrence: CN)
  Receive Date: 20160818
  Receipt Date: 20160818
  Transmission Date: 20161109
  Serious: Yes (Hospitalization)
  Sender: FDA-Public Use
  Company Number: CN-PFIZER INC-2016391632

PATIENT
  Age: 35 Year
  Sex: Male
  Weight: 85 kg

DRUGS (2)
  1. LORA [Concomitant]
     Indication: SLEEP DISORDER
     Dosage: 0.5 MG, 1X/DAY
     Route: 048
     Dates: start: 20160112, end: 20160114
  2. ZOLOFT [Suspect]
     Active Substance: SERTRALINE HYDROCHLORIDE
     Indication: DISCOMFORT
     Dosage: 100 MG, 1X/DAY
     Route: 048
     Dates: start: 20151215, end: 20160114

REACTIONS (1)
  - Electrocardiogram T wave abnormal [Recovering/Resolving]

NARRATIVE: CASE EVENT DATE: 20160114
